FAERS Safety Report 7262990-1 (Version None)
Quarter: 2011Q1

REPORT INFORMATION
  Report Type: 
  Country: None (occurrence: None)
  Receive Date: 20110130
  Receipt Date: 20101014
  Transmission Date: 20110831
  Serious: No
  Sender: FDA-Public Use
  Company Number: US-ABBOTT-10P-163-0679013-00

PATIENT
  Sex: Female
  Weight: 63.56 kg

DRUGS (2)
  1. HUMIRA [Suspect]
     Indication: PSORIASIS
     Route: 058
     Dates: start: 20090901, end: 20091101
  2. HUMIRA [Suspect]
     Route: 058
     Dates: start: 20100901

REACTIONS (3)
  - PSORIASIS [None]
  - COUGH [None]
  - NASOPHARYNGITIS [None]
